FAERS Safety Report 7851414-9 (Version None)
Quarter: 2011Q4

REPORT INFORMATION
  Report Type: 
  Country: None (occurrence: None)
  Receive Date: 20111024
  Receipt Date: 20111012
  Transmission Date: 20120403
  Serious: Yes (Hospitalization, Other)
  Sender: FDA-Public Use
  Company Number: GB-ACCORD-010991

PATIENT
  Age: 7 Year
  Sex: Female

DRUGS (4)
  1. RITUXIMAB (RITUXIMAB) [Concomitant]
  2. MYCOPHENOLATE MOFETIL [Suspect]
     Indication: PRODUCT USED FOR UNKNOWN INDICATION
  3. IMMUNE GLOBULIN (HUMAN) [Suspect]
     Indication: EVANS SYNDROME
     Dosage: INTRAVENOUS DRIP
     Route: 041
  4. PREDNISOLONE [Suspect]
     Indication: PRODUCT USED FOR UNKNOWN INDICATION

REACTIONS (5)
  - PULMONARY HYPERTENSION [None]
  - PULMONARY OEDEMA [None]
  - HERPES ZOSTER [None]
  - RIGHT ATRIAL HYPERTROPHY [None]
  - RIGHT VENTRICULAR HYPERTROPHY [None]
